FAERS Safety Report 4428340-0 (Version None)
Quarter: 2004Q3

REPORT INFORMATION
  Report Type: 
  Country: None (occurrence: None)
  Receive Date: 20040818
  Receipt Date: 20040806
  Transmission Date: 20050211
  Serious: Yes (Death, Hospitalization)
  Sender: FDA-Public Use
  Company Number: US-JNJFOC-20030704763

PATIENT
  Sex: Female
  Weight: 63.96 kg

DRUGS (20)
  1. REMICADE [Suspect]
     Route: 042
  2. REMICADE [Suspect]
     Route: 042
  3. REMICADE [Suspect]
     Route: 042
  4. REMICADE [Suspect]
     Route: 042
  5. REMICADE [Suspect]
     Route: 042
  6. REMICADE [Suspect]
     Indication: RHEUMATOID ARTHRITIS
     Route: 042
  7. METHOTREXATE [Concomitant]
  8. PREDNISONE [Concomitant]
     Dosage: DECREASED OVER A MONTH PRIOR TO EVENT FROM 4MG TO 1 MG
  9. ENALAPRIL MALEATE [Concomitant]
  10. VIOXX [Concomitant]
  11. FOSAMAX [Concomitant]
  12. HYDROCHLOROTHIAZIDE [Concomitant]
  13. RANITIDINE [Concomitant]
  14. PREMARIN [Concomitant]
  15. FOLIC ACID [Concomitant]
  16. CALTRATE [Concomitant]
  17. GLUCOSAMINE/CHONDROITIN [Concomitant]
  18. GLUCOSAMINE/CHONDROITIN [Concomitant]
  19. GLUCOSAMINE/CHONDROITIN [Concomitant]
  20. GLUCOSAMINE/CHONDROITIN [Concomitant]

REACTIONS (8)
  - ABDOMINAL PAIN UPPER [None]
  - CANDIDIASIS [None]
  - DEHYDRATION [None]
  - DIZZINESS [None]
  - DRY MOUTH [None]
  - HEART RATE INCREASED [None]
  - PNEUMOCYSTIS CARINII PNEUMONIA [None]
  - POLYDIPSIA [None]
